FAERS Safety Report 18392320 (Version 1)
Quarter: 2020Q4

REPORT INFORMATION
  Report Type: Spontaneous
  Country: FR (occurrence: FR)
  Receive Date: 20201016
  Receipt Date: 20201016
  Transmission Date: 20210114
  Serious: Yes (Hospitalization)
  Sender: FDA-Public Use
  Company Number: FR-MYLANLABS-2020M1087062

PATIENT
  Age: 53 Year
  Sex: Male

DRUGS (2)
  1. RUXOLITINIB [Concomitant]
     Active Substance: RUXOLITINIB
     Indication: CHRONIC GRAFT VERSUS HOST DISEASE
     Dosage: UNK
     Route: 065
  2. ACICLOVIR [Suspect]
     Active Substance: ACYCLOVIR
     Indication: VARICELLA ZOSTER VIRUS INFECTION
     Dosage: 10 MILLIGRAM/KILOGRAM, TID
     Route: 042

REACTIONS (4)
  - Orthostatic hypotension [Recovering/Resolving]
  - Renal tubular dysfunction [Recovering/Resolving]
  - Polyuria [Recovering/Resolving]
  - Hypovolaemia [Recovering/Resolving]
